FAERS Safety Report 6156673-9 (Version None)
Quarter: 2009Q2

REPORT INFORMATION
  Report Type: 
  Country: None (occurrence: None)
  Receive Date: 20090416
  Receipt Date: 20090406
  Transmission Date: 20091009
  Serious: Yes (Hospitalization)
  Sender: FDA-Public Use
  Company Number: US-SOLVAY-00209002018

PATIENT
  Age: 62 Year
  Sex: Male

DRUGS (1)
  1. ANDROGEL [Suspect]
     Indication: DRUG USE FOR UNKNOWN INDICATION
     Dosage: DAILY DOSE: 5 GRAM(S)
     Route: 062

REACTIONS (1)
  - ADRENAL HAEMORRHAGE [None]
